FAERS Safety Report 9870559 (Version 1)
Quarter: 2014Q1

REPORT INFORMATION
  Report Type: Spontaneous
  Country: US (occurrence: None)
  Receive Date: 20140204
  Receipt Date: 20140204
  Transmission Date: 20141002
  Serious: No
  Sender: FDA-Public Use
  Company Number: None

PATIENT
  Age: 61 Year
  Sex: Female
  Weight: 54.43 kg

DRUGS (1)
  1. SULFAMETH/TRIMETHOPRIM [Suspect]
     Dosage: 1 PILL  TWICE DAILY  TAKEN BY MOUTH
     Route: 048

REACTIONS (7)
  - Pyrexia [None]
  - Headache [None]
  - Vomiting [None]
  - Urticaria [None]
  - Rash [None]
  - Vision blurred [None]
  - Drug hypersensitivity [None]
